FAERS Safety Report 18606766 (Version 7)
Quarter: 2022Q4

REPORT INFORMATION
  Report Type: Report from Study
  Country: TW (occurrence: TW)
  Receive Date: 20201211
  Receipt Date: 20221201
  Transmission Date: 20230113
  Serious: Yes (Hospitalization)
  Sender: FDA-Public Use
  Company Number: NVSC2020TW325522

PATIENT
  Age: 67 Year
  Sex: Female
  Weight: 56.5 kg

DRUGS (8)
  1. CAPMATINIB [Suspect]
     Active Substance: CAPMATINIB
     Indication: Non-small cell lung cancer
     Dosage: 800 MG, BID (2 TIMES PER DAY)
     Route: 048
     Dates: start: 20201125, end: 20201204
  2. PEMBROLIZUMAB [Suspect]
     Active Substance: PEMBROLIZUMAB
     Indication: Non-small cell lung cancer
     Dosage: 200 MG, Q3W
     Route: 042
     Dates: start: 20201125
  3. DEXTROMETHORPHAN [Concomitant]
     Active Substance: DEXTROMETHORPHAN
     Indication: Cough
     Dosage: UNK
     Route: 065
     Dates: start: 20201125, end: 20201216
  4. OPIUM [Concomitant]
     Active Substance: OPIUM
     Indication: Cough
     Dosage: UNK
     Route: 065
     Dates: start: 20201125, end: 20210330
  5. BROMELAINS [Concomitant]
     Active Substance: BROMELAINS
     Indication: Cough
     Dosage: UNK
     Route: 065
     Dates: start: 20201125, end: 20210415
  6. PANCREATIN [Concomitant]
     Active Substance: PANCRELIPASE
     Indication: Nausea
     Dosage: UNK
     Route: 065
     Dates: start: 20201202, end: 20201216
  7. ACETYLCYSTEINE [Concomitant]
     Active Substance: ACETYLCYSTEINE
     Indication: Cough
     Dosage: UNK
     Route: 065
     Dates: start: 20201125, end: 20210330
  8. ACETAMINOPHEN [Concomitant]
     Active Substance: ACETAMINOPHEN
     Indication: Pyrexia
     Dosage: UNK
     Route: 065
     Dates: start: 20201125, end: 20201125

REACTIONS (1)
  - Pyrexia [Recovered/Resolved]

NARRATIVE: CASE EVENT DATE: 20201204
